FAERS Safety Report 4877275-8 (Version None)
Quarter: 2006Q1

REPORT INFORMATION
  Report Type: 
  Country: None (occurrence: None)
  Receive Date: 20060106
  Receipt Date: 20051222
  Transmission Date: 20060701
  Serious: Yes (Hospitalization)
  Sender: FDA-Public Use
  Company Number: FABR-11349

PATIENT
  Age: 31 Year
  Sex: 0

DRUGS (4)
  1. FABRAZYME [Suspect]
     Indication: FABRY'S DISEASE
  2. TEGRETOL [Concomitant]
  3. PARACETAMOL [Concomitant]
  4. PIRITON [Concomitant]

REACTIONS (5)
  - COUGH [None]
  - PRURITUS [None]
  - SINUS CONGESTION [None]
  - SYRINGOMYELIA [None]
  - WHEEZING [None]
